FAERS Safety Report 9170200 (Version 2)
Quarter: 2013Q2

REPORT INFORMATION
  Report Type: Spontaneous
  Country: JP (occurrence: JP)
  Receive Date: 20130319
  Receipt Date: 20130522
  Transmission Date: 20140414
  Serious: Yes (Other)
  Sender: FDA-Public Use
  Company Number: PHHY2013JP026262

PATIENT
  Age: 45 Year
  Sex: Male

DRUGS (4)
  1. TEGRETOL [Suspect]
     Indication: CONVULSION
     Route: 048
  2. CYMBALTA [Interacting]
     Indication: DEPRESSION
     Dosage: UNK
     Route: 048
  3. REFLEX//MIRTAZAPINE [Interacting]
     Indication: DEPRESSION
     Route: 048
  4. RIZE [Interacting]
     Indication: DEPRESSION
     Route: 048

REACTIONS (2)
  - Blood creatine phosphokinase increased [Recovered/Resolved]
  - Drug interaction [Recovered/Resolved]
